FAERS Safety Report 4302078-2 (Version None)
Quarter: 2004Q1

REPORT INFORMATION
  Report Type: 
  Country: None (occurrence: None)
  Receive Date: 20040126
  Receipt Date: 20030904
  Transmission Date: 20041129
  Serious: No
  Sender: FDA-Public Use
  Company Number: US_030997476

PATIENT
  Age: 12 Year
  Sex: Male
  Weight: 58 kg

DRUGS (2)
  1. STRATTERA [Suspect]
     Indication: ATTENTION DEFICIT/HYPERACTIVITY DISORDER
     Dosage: 25 MG/DAY
     Dates: end: 20030612
  2. PAXIL [Concomitant]

REACTIONS (3)
  - NAUSEA [None]
  - SWELLING FACE [None]
  - VOMITING [None]
